FAERS Safety Report 19469318 (Version 1)
Quarter: 2021Q2

REPORT INFORMATION
  Report Type: Spontaneous
  Country: US (occurrence: US)
  Receive Date: 20210628
  Receipt Date: 20210628
  Transmission Date: 20210717
  Serious: Yes (Other)
  Sender: FDA-Public Use
  Company Number: US-ELI_LILLY_AND_COMPANY-US202106007201

PATIENT
  Sex: Male

DRUGS (1)
  1. EMGALITY [Suspect]
     Active Substance: GALCANEZUMAB-GNLM
     Indication: MIGRAINE
     Dosage: UNK, UNKNOWN
     Route: 065

REACTIONS (13)
  - Varicose vein [Unknown]
  - Oedema [Unknown]
  - Mass [Unknown]
  - Joint injury [Unknown]
  - Emotional distress [Unknown]
  - Tachycardia [Unknown]
  - Fluid retention [Unknown]
  - Swelling [Unknown]
  - Hypertension [Unknown]
  - Chills [Unknown]
  - Pyrexia [Unknown]
  - Dyspnoea [Unknown]
  - Insomnia [Unknown]
